FAERS Safety Report 15935999 (Version 1)
Quarter: 2019Q1

REPORT INFORMATION
  Report Type: Spontaneous
  Country: US (occurrence: US)
  Receive Date: 20190116
  Receipt Date: 20190116
  Transmission Date: 20190417
  Serious: No
  Sender: FDA-Public Use
  Company Number: None

PATIENT
  Age: 87 Year
  Sex: Male

DRUGS (1)
  1. NINLARO [Suspect]
     Active Substance: IXAZOMIB CITRATE
     Indication: PLASMA CELL MYELOMA IN REMISSION
     Dosage: ?          OTHER DOSE:2.3MG;?
     Route: 048
     Dates: start: 20180606, end: 20181201

REACTIONS (1)
  - Influenza [None]
